FAERS Safety Report 9713764 (Version 1)
Quarter: 2013Q4

REPORT INFORMATION
  Report Type: Report from Study
  Country: NL (occurrence: NL)
  Receive Date: 20131126
  Receipt Date: 20131126
  Transmission Date: 20140711
  Serious: Yes (Other)
  Sender: FDA-Public Use
  Company Number: NL-MYLANLABS-2013S1026229

PATIENT
  Sex: Male

DRUGS (7)
  1. GABAPENTIN [Suspect]
     Indication: DIABETIC FOOT
     Dosage: 3 DD 300MG, AT 12, 18 AND 24 HOURS
     Route: 065
  2. INSULIN [Interacting]
     Indication: TYPE 1 DIABETES MELLITUS
     Route: 065
  3. INSULIN INJECTION [Interacting]
     Indication: TYPE 1 DIABETES MELLITUS
     Route: 065
  4. OMEPRAZOLE [Suspect]
     Dosage: 1 DD 20MG
     Route: 065
  5. PREDNISOLONE [Concomitant]
     Dosage: 0.37%
     Route: 031
  6. GRAMICIDIN W/NEOMYCIN SULFATE/POLYMYCIN B [Concomitant]
     Dosage: NEOMYCIN/POLYMIXIN B/GRAMICIDIN
     Route: 031
  7. ALFUZOSIN [Concomitant]
     Route: 065

REACTIONS (5)
  - Hypoglycaemia [Recovered/Resolved]
  - Drug interaction [Recovered/Resolved]
  - Tremor [Unknown]
  - Loss of consciousness [Unknown]
  - Coma [Unknown]
